FAERS Safety Report 26098306 (Version 1)
Quarter: 2025Q4

REPORT INFORMATION
  Report Type: Spontaneous
  Country: EU (occurrence: EU)
  Receive Date: 20251127
  Receipt Date: 20251127
  Transmission Date: 20260118
  Serious: Yes (Other)
  Sender: PFIZER
  Company Number: EU-PFIZER INC-PV202500139688

PATIENT
  Age: 35 Year
  Sex: Male

DRUGS (1)
  1. INFLIXIMAB [Suspect]
     Active Substance: INFLIXIMAB
     Indication: Colitis ulcerative
     Dosage: UNK
     Dates: end: 20211202

REACTIONS (3)
  - Psoriatic arthropathy [Unknown]
  - Injury [Unknown]
  - Psoriasis [Unknown]

NARRATIVE: CASE EVENT DATE: 20211216
